FAERS Safety Report 20174556 (Version 10)
Quarter: 2022Q3

REPORT INFORMATION
  Report Type: Report from Study
  Country: CA (occurrence: CA)
  Receive Date: 20211213
  Receipt Date: 20220703
  Transmission Date: 20221027
  Serious: Yes (Hospitalization, Other)
  Sender: FDA-Public Use
  Company Number: CA-BRISTOL-MYERS SQUIBB COMPANY-BMS-2021-037139

PATIENT
  Age: 67 Year
  Sex: Female
  Weight: 60.00 kg

DRUGS (6)
  1. ABATACEPT [Suspect]
     Active Substance: ABATACEPT
     Indication: Rheumatoid arthritis
     Dosage: 500 MILLIGRAM, Q4WK
     Route: 042
     Dates: start: 20201224
  2. ABATACEPT [Suspect]
     Active Substance: ABATACEPT
     Dosage: INSTEAD OF TAKING 4 PILLS SHE IS TAKING 6
     Route: 042
  3. ABATACEPT [Suspect]
     Active Substance: ABATACEPT
     Dosage: 750 MILLIGRAM, Q4WK
     Route: 042
     Dates: start: 20201224, end: 202111
  4. PLAQUENIL [Concomitant]
     Active Substance: HYDROXYCHLOROQUINE SULFATE
     Indication: Product used for unknown indication
     Dosage: UNK
     Route: 065
  5. ARAVA [Concomitant]
     Active Substance: LEFLUNOMIDE
     Indication: Product used for unknown indication
     Dosage: UNK
     Route: 065
  6. SUBOXONE [Concomitant]
     Active Substance: BUPRENORPHINE HYDROCHLORIDE\NALOXONE HYDROCHLORIDE
     Indication: Product used for unknown indication
     Dosage: UNK
     Route: 065

REACTIONS (16)
  - Cerebrovascular accident [Unknown]
  - Intervertebral disc protrusion [Unknown]
  - Back pain [Recovering/Resolving]
  - Spinal disorder [Not Recovered/Not Resolved]
  - Malaise [Not Recovered/Not Resolved]
  - Inappropriate schedule of product administration [Unknown]
  - Nerve compression [Unknown]
  - Movement disorder [Unknown]
  - Gait disturbance [Recovering/Resolving]
  - Therapeutic response decreased [Unknown]
  - Pain in extremity [Not Recovered/Not Resolved]
  - Product dose omission issue [Unknown]
  - Staphylococcal infection [Unknown]
  - Ear disorder [Unknown]
  - Incision site pain [Unknown]
  - Off label use [Unknown]

NARRATIVE: CASE EVENT DATE: 20210101
